FAERS Safety Report 11821932 (Version 1)
Quarter: 2015Q4

REPORT INFORMATION
  Report Type: Spontaneous
  Country: US (occurrence: US)
  Receive Date: 20151210
  Receipt Date: 20151210
  Transmission Date: 20160305
  Serious: No
  Sender: FDA-Public Use
  Company Number: US-JNJFOC-20150800373

PATIENT
  Age: 85 Year
  Sex: Male

DRUGS (21)
  1. MINERALS NOS [Concomitant]
     Active Substance: MINERALS
  2. IMBRUVICA [Suspect]
     Active Substance: IBRUTINIB
     Indication: CHRONIC LYMPHOCYTIC LEUKAEMIA
     Route: 048
     Dates: start: 20150604
  3. COUMADIN [Concomitant]
     Active Substance: WARFARIN SODIUM
  4. POSACONAZOLE [Concomitant]
     Active Substance: POSACONAZOLE
  5. CLARITIN [Concomitant]
     Active Substance: LORATADINE
  6. REPAGLINIDE. [Concomitant]
     Active Substance: REPAGLINIDE
  7. COLACE [Concomitant]
     Active Substance: DOCUSATE SODIUM
  8. VITAMINS NOS [Concomitant]
     Active Substance: VITAMINS
  9. PROTEINS NOS [Concomitant]
  10. TIOTROPIUM [Concomitant]
     Active Substance: TIOTROPIUM
  11. GARLIC. [Concomitant]
     Active Substance: GARLIC
  12. SINGULAIR [Concomitant]
     Active Substance: MONTELUKAST SODIUM
  13. SENNA [Concomitant]
     Active Substance: SENNA LEAF\SENNOSIDES\SENNOSIDES A AND B
  14. IMBRUVICA [Suspect]
     Active Substance: IBRUTINIB
     Indication: CHRONIC LYMPHOCYTIC LEUKAEMIA
     Route: 048
  15. IMBRUVICA [Suspect]
     Active Substance: IBRUTINIB
     Indication: ACUTE LYMPHOCYTIC LEUKAEMIA (IN REMISSION)
     Route: 048
  16. IMBRUVICA [Suspect]
     Active Substance: IBRUTINIB
     Indication: ACUTE LYMPHOCYTIC LEUKAEMIA (IN REMISSION)
     Route: 048
     Dates: start: 20150604
  17. CARDIZEM [Concomitant]
     Active Substance: DILTIAZEM HYDROCHLORIDE
  18. FLOMAX [Concomitant]
     Active Substance: TAMSULOSIN HYDROCHLORIDE
  19. LASIX [Concomitant]
     Active Substance: FUROSEMIDE
  20. ANTIOXIDANT NOS [Concomitant]
  21. TAMSULOSIN [Concomitant]
     Active Substance: TAMSULOSIN

REACTIONS (7)
  - Asthenia [Unknown]
  - Dizziness [Not Recovered/Not Resolved]
  - Fatigue [Unknown]
  - Mouth haemorrhage [Unknown]
  - Neoplasm [Recovering/Resolving]
  - Platelet count decreased [Unknown]
  - Off label use [Unknown]

NARRATIVE: CASE EVENT DATE: 2015
